FAERS Safety Report 9801463 (Version 1)
Quarter: 2014Q1

REPORT INFORMATION
  Report Type: Spontaneous
  Country: HK (occurrence: HK)
  Receive Date: 20140107
  Receipt Date: 20140107
  Transmission Date: 20141002
  Serious: Yes (Other)
  Sender: FDA-Public Use
  Company Number: HK-PFIZER INC-2014000090

PATIENT
  Age: 31 Year
  Sex: Female

DRUGS (3)
  1. CARBOPLATIN [Suspect]
     Indication: BLADDER CANCER
     Dosage: UNK, DAY 1, AREA UNDER CURVE 5 MG/ML/MIN
     Route: 042
     Dates: start: 201204, end: 201205
  2. ETOPOSIDE [Suspect]
     Indication: BLADDER CANCER
     Dosage: 100 MG/M2, CYCLIC (DAYS 1-5 REPEATED EVERY 21 DAY)
     Route: 042
     Dates: start: 201204, end: 201205
  3. BLEOMYCIN [Suspect]
     Indication: BLADDER CANCER
     Dosage: 30 MG, CYCLIC (DAYS 1, 8 AND 15, REPEATED EVERY 21 DAY)
     Route: 042
     Dates: start: 201204, end: 201205

REACTIONS (4)
  - Mucosal inflammation [Unknown]
  - Neutropenic sepsis [Unknown]
  - Appendicitis [Unknown]
  - Abdominal abscess [Unknown]
